FAERS Safety Report 16816334 (Version 1)
Quarter: 2019Q3

REPORT INFORMATION
  Report Type: Spontaneous
  Country: US (occurrence: US)
  Receive Date: 20190917
  Receipt Date: 20190917
  Transmission Date: 20191005
  Serious: Yes (Hospitalization, Disabling)
  Sender: FDA-Public Use
  Company Number: US-JNJFOC-20190909780

PATIENT
  Age: 69 Year
  Sex: Female

DRUGS (1)
  1. INVOKANA [Suspect]
     Active Substance: CANAGLIFLOZIN
     Indication: PRODUCT USED FOR UNKNOWN INDICATION
     Route: 048

REACTIONS (8)
  - Osteomyelitis [Unknown]
  - Infection [Recovering/Resolving]
  - Toe amputation [Unknown]
  - Infected skin ulcer [Unknown]
  - Leg amputation [Unknown]
  - Abscess [Recovering/Resolving]
  - Localised infection [Recovering/Resolving]
  - Skin ulcer [Recovering/Resolving]

NARRATIVE: CASE EVENT DATE: 20160813
